FAERS Safety Report 6135263-8 (Version None)
Quarter: 2009Q1

REPORT INFORMATION
  Report Type: 
  Country: None (occurrence: None)
  Receive Date: 20090327
  Receipt Date: 20080616
  Transmission Date: 20090719
  Serious: No
  Sender: FDA-Public Use
  Company Number: US-TYCO HEALTHCARE/MALLINCKRODT-T200801026

PATIENT

DRUGS (1)
  1. OPTIMARK [Suspect]
     Indication: NUCLEAR MAGNETIC RESONANCE IMAGING BRAIN
     Dosage: 11 ML, SINGLE
     Route: 042
     Dates: start: 20080616, end: 20080616

REACTIONS (3)
  - EYE SWELLING [None]
  - NASAL CONGESTION [None]
  - SNEEZING [None]
